FAERS Safety Report 15579927 (Version 1)
Quarter: 2018Q4

REPORT INFORMATION
  Report Type: Spontaneous
  Country: US (occurrence: US)
  Receive Date: 20181102
  Receipt Date: 20181102
  Transmission Date: 20190205
  Serious: Yes (Hospitalization)
  Sender: FDA-Public Use
  Company Number: None

PATIENT
  Age: 49 Year
  Sex: Female
  Weight: 62.1 kg

DRUGS (1)
  1. AIMOVIG [Suspect]
     Active Substance: ERENUMAB-AOOE
     Indication: MIGRAINE
     Dosage: ?          OTHER FREQUENCY:ONCE MONTHLY;?
     Route: 058
     Dates: start: 20180730

REACTIONS (8)
  - Pain in extremity [None]
  - Visual field defect [None]
  - Diarrhoea [None]
  - Diffusion-weighted brain MRI abnormal [None]
  - Hemianopia [None]
  - Eye movement disorder [None]
  - Ataxia [None]
  - Nausea [None]

NARRATIVE: CASE EVENT DATE: 20180822
